FAERS Safety Report 16496174 (Version 1)
Quarter: 2019Q2

REPORT INFORMATION
  Report Type: Spontaneous
  Country: US (occurrence: US)
  Receive Date: 20190628
  Receipt Date: 20190628
  Transmission Date: 20190711
  Serious: No
  Sender: FDA-Public Use
  Company Number: US-PRINSTON PHARMACEUTICAL INC.-2019PRN00244

PATIENT
  Sex: Female

DRUGS (2)
  1. ESTROGEN PATCH [Concomitant]
     Active Substance: ESTRADIOL
  2. IRBESARTAN AND HYDROCHLOROTHIAZIDE [Suspect]
     Active Substance: HYDROCHLOROTHIAZIDE\IRBESARTAN
     Indication: HYPERTENSION
     Dosage: 1 TABLETS, 1X/DAY
     Route: 048
     Dates: start: 20180915, end: 201810

REACTIONS (4)
  - Feeling abnormal [Recovered/Resolved]
  - Recalled product administered [Recovered/Resolved]
  - Feeling jittery [Recovered/Resolved]
  - Paraesthesia [Recovered/Resolved]

NARRATIVE: CASE EVENT DATE: 201809
